FAERS Safety Report 23344329 (Version 3)
Quarter: 2024Q3

REPORT INFORMATION
  Report Type: Spontaneous
  Country: ES (occurrence: ES)
  Receive Date: 20231228
  Receipt Date: 20240801
  Transmission Date: 20241017
  Serious: Yes (Death)
  Sender: JOHNSON AND JOHNSON
  Company Number: ES-JNJFOC-20231263308

PATIENT
  Age: 98 Year
  Sex: Female
  Weight: 75.3 kg

DRUGS (13)
  1. STELARA [Suspect]
     Active Substance: USTEKINUMAB
     Indication: Psoriasis
     Dosage: DE-INTENSIFIED SINCE 2019 EVERY 4-5 MONTHS.
     Route: 058
     Dates: start: 20091005, end: 2020
  2. LEVOTHYROXINE SODIUM [Concomitant]
     Active Substance: LEVOTHYROXINE SODIUM
     Route: 065
  3. ALOGLIPTIN [Concomitant]
     Active Substance: ALOGLIPTIN
     Route: 065
  4. INSULIN NOS [Concomitant]
     Active Substance: INSULIN NOS
  5. LINAGLIPTIN [Concomitant]
     Active Substance: LINAGLIPTIN
     Dates: start: 20170725
  6. ALLOPURINOL [Concomitant]
     Active Substance: ALLOPURINOL
  7. QUETIAPINE [Concomitant]
     Active Substance: QUETIAPINE
     Indication: Insomnia
  8. ATROVENT [Concomitant]
     Active Substance: IPRATROPIUM BROMIDE
     Dosage: 2 INCHES FOR 8 HOURS
  9. HYDROCHLOROTHIAZIDE [Concomitant]
     Active Substance: HYDROCHLOROTHIAZIDE
  10. FUROSEMIDE [Concomitant]
     Active Substance: FUROSEMIDE
     Dates: end: 20211010
  11. CYANOCOBALAMIN [Concomitant]
     Active Substance: CYANOCOBALAMIN
  12. DUPHALAC [Concomitant]
     Active Substance: LACTULOSE
  13. MOMETASONE FUROATE [Concomitant]
     Active Substance: MOMETASONE FUROATE

REACTIONS (1)
  - Death [Fatal]
